FAERS Safety Report 6781142-2 (Version None)
Quarter: 2010Q2

REPORT INFORMATION
  Report Type: 
  Country: None (occurrence: None)
  Receive Date: 20100617
  Receipt Date: 20100617
  Transmission Date: 20101027
  Serious: No
  Sender: FDA-Public Use
  Company Number: None

PATIENT
  Sex: Male
  Weight: 83.9154 kg

DRUGS (2)
  1. AVODART [Suspect]
     Indication: PROSTATOMEGALY
     Dosage: 0.5MG DAILY ORAL
     Route: 048
     Dates: start: 20100101
  2. AVODART [Suspect]
     Indication: PROSTATOMEGALY
     Dosage: 0.5MG DAILY ORAL
     Route: 048
     Dates: start: 20100501

REACTIONS (3)
  - ASTHENIA [None]
  - FATIGUE [None]
  - LETHARGY [None]
